FAERS Safety Report 8511817-6 (Version None)
Quarter: 2012Q3

REPORT INFORMATION
  Report Type: 
  Country: None (occurrence: None)
  Receive Date: 20120716
  Receipt Date: 20120711
  Transmission Date: 20120928
  Serious: Yes (Hospitalization, Other)
  Sender: FDA-Public Use
  Company Number: PHHY2011NL110518

PATIENT
  Sex: Female

DRUGS (4)
  1. ZOMETA [Suspect]
     Dosage: 4 MG/100ML, 1X PER 28 DAYS
     Dates: start: 20120613
  2. ZOMETA [Suspect]
     Indication: BREAST CANCER METASTATIC
     Dosage: 4 MG/ 5ML ONCE PER 28 DAYS
     Dates: start: 20100715
  3. ZOMETA [Suspect]
     Dosage: 4 MG/ 5ML ONCE PER 28 DAYS
     Dates: start: 20111103
  4. ZOMETA [Suspect]
     Dosage: 4 MG/ 5ML ONCE PER 28 DAYS
     Dates: start: 20111202

REACTIONS (6)
  - DYSPNOEA [None]
  - CHEST DISCOMFORT [None]
  - NEOPLASM PROGRESSION [None]
  - EFFUSION [None]
  - FLUID RETENTION [None]
  - NEOPLASM MALIGNANT [None]
